FAERS Safety Report 5888278-9 (Version None)
Quarter: 2008Q3

REPORT INFORMATION
  Report Type: 
  Country: None (occurrence: None)
  Receive Date: 20080918
  Receipt Date: 20080911
  Transmission Date: 20090109
  Serious: Yes (Hospitalization, Disabling, Other)
  Sender: FDA-Public Use
  Company Number: JP-ASTRAZENECA-2008AP07177

PATIENT
  Age: 27 Year
  Sex: Female

DRUGS (7)
  1. ANAPEINE INJECTION [Suspect]
     Indication: EPIDURAL ANAESTHESIA
     Route: 008
     Dates: start: 20080811, end: 20080811
  2. ANAPEINE INJECTION [Suspect]
     Indication: ANALGESIA
     Route: 008
     Dates: start: 20080811, end: 20080811
  3. ANAPEINE INJECTION [Suspect]
     Route: 008
     Dates: start: 20080811, end: 20080811
  4. ANAPEINE INJECTION [Suspect]
     Route: 008
     Dates: start: 20080811, end: 20080811
  5. ANAPEINE INJECTION [Suspect]
     Dosage: DOSE UNKNOWN
     Route: 008
     Dates: start: 20080811, end: 20080813
  6. ANAPEINE INJECTION [Suspect]
     Dosage: DOSE UNKNOWN
     Route: 008
     Dates: start: 20080811, end: 20080813
  7. FENTANYL [Concomitant]
     Indication: EPIDURAL ANAESTHESIA
     Dosage: DOSE UNKNOWN
     Route: 008
     Dates: start: 20080811

REACTIONS (4)
  - DYSSTASIA [None]
  - MOTOR DYSFUNCTION [None]
  - NEUROTOXICITY [None]
  - PARALYSIS [None]
